FAERS Safety Report 8021839-X (Version None)
Quarter: 2012Q1

REPORT INFORMATION
  Report Type: 
  Country: None (occurrence: None)
  Receive Date: 20120104
  Receipt Date: 20111220
  Transmission Date: 20120608
  Serious: Yes (Other)
  Sender: FDA-Public Use
  Company Number: FR-UCBSA-045201

PATIENT
  Sex: Female
  Weight: 57 kg

DRUGS (4)
  1. METHOTREXATE [Concomitant]
     Indication: MUSCULOSKELETAL PAIN
     Route: 058
     Dates: start: 20100801
  2. CIMZIA [Suspect]
     Indication: MUSCULOSKELETAL PAIN
     Dosage: 400 MG
     Route: 058
     Dates: start: 20110810, end: 20110902
  3. COLCHICINE [Concomitant]
     Indication: MUSCULOSKELETAL PAIN
  4. PLAQUENIL [Concomitant]
     Indication: MUSCULOSKELETAL PAIN
     Route: 048

REACTIONS (7)
  - HEMIPARESIS [None]
  - TREMOR [None]
  - DYSKINESIA [None]
  - VERTIGO [None]
  - MALAISE [None]
  - EPILEPSY [None]
  - LOSS OF CONSCIOUSNESS [None]
